FAERS Safety Report 17413559 (Version 1)
Quarter: 2020Q1

REPORT INFORMATION
  Report Type: Spontaneous
  Country: US (occurrence: US)
  Receive Date: 20200213
  Receipt Date: 20200213
  Transmission Date: 20200409
  Serious: No
  Sender: FDA-Public Use
  Company Number: None

PATIENT

DRUGS (2)
  1. CARBOPROST INJ [Suspect]
     Active Substance: CARBOPROST
  2. METHYLERGONOVINE [Suspect]
     Active Substance: METHYLERGONOVINE

REACTIONS (3)
  - Intercepted product administration error [None]
  - Product name confusion [None]
  - Product appearance confusion [None]
